FAERS Safety Report 9412396 (Version 1)
Quarter: 2013Q2

REPORT INFORMATION
  Report Type: Spontaneous
  Country: DE (occurrence: None)
  Receive Date: 20130508
  Receipt Date: 20130508
  Transmission Date: 20140414
  Serious: Yes (Hospitalization, Other)
  Sender: FDA-Public Use
  Company Number: 1303-342

PATIENT
  Age: 83 Year
  Sex: Male

DRUGS (1)
  1. EYLEA (AFLIBERCEPT) (AFLIBERCEPT) [Suspect]
     Dosage: INTRAVITREAL
     Dates: start: 20130220

REACTIONS (1)
  - Angina pectoris [None]
